FAERS Safety Report 16584837 (Version 1)
Quarter: 2019Q3

REPORT INFORMATION
  Report Type: Spontaneous
  Country: DE (occurrence: DE)
  Receive Date: 20190717
  Receipt Date: 20190717
  Transmission Date: 20191004
  Serious: Yes (Hospitalization)
  Sender: FDA-Public Use
  Company Number: DE-TEVA-2019-DE-1077118

PATIENT
  Age: 68 Year
  Sex: Female

DRUGS (9)
  1. METOCLOPRAMID [Concomitant]
     Active Substance: METOCLOPRAMIDE
     Dosage: 10 MG, NEED; MAX 4 X / D
  2. LEVOTHYROXIN-NATRIUM [Concomitant]
     Active Substance: LEVOTHYROXINE SODIUM
     Dosage: 50 MICROGRAM , 0.5-0-0-0
  3. TORASEMID [Concomitant]
     Active Substance: TORSEMIDE
     Dosage: 20 MG, 1-0-0-0
  4. ONDANSETRON [Concomitant]
     Active Substance: ONDANSETRON
     Dosage: 8 MG, NEED; MAX. 2X / D
     Route: 060
  5. COLECALCIFEROL [Concomitant]
     Active Substance: CHOLECALCIFEROL
     Dosage: 1000 IE, 1-0-0-0
  6. GEMCITABINE. [Suspect]
     Active Substance: GEMCITABINE
     Dosage: NK MG, MOST RECENTLY ON 16.01.2018
  7. ENOXAPARIN [Concomitant]
     Active Substance: ENOXAPARIN
     Dosage: 0.7 ML, 1-0-1-0
  8. ATENOLOL. [Concomitant]
     Active Substance: ATENOLOL
     Dosage: 50 MG, 1-0-1-0
  9. NORMALINSULIN [Concomitant]
     Dosage: NK IE, AFTER BZ

REACTIONS (4)
  - Decreased appetite [Unknown]
  - Liver function test abnormal [Unknown]
  - Nausea [Unknown]
  - Blood count abnormal [Unknown]
